FAERS Safety Report 23324727 (Version 1)
Quarter: 2023Q4

REPORT INFORMATION
  Report Type: Spontaneous
  Country: GB (occurrence: GB)
  Receive Date: 20231221
  Receipt Date: 20231221
  Transmission Date: 20240110
  Serious: Yes (Other)
  Sender: FDA-Public Use
  Company Number: GB-CRESCENT PHARMA LIMITED-2023-GB-08395

PATIENT
  Age: 77 Year

DRUGS (1)
  1. WARFARIN [Suspect]
     Active Substance: WARFARIN
     Indication: Product used for unknown indication
     Dosage: UNK (AS PER INR)
     Route: 048
     Dates: start: 202306, end: 20230913

REACTIONS (2)
  - Retinal artery occlusion [Unknown]
  - Injury [Unknown]

NARRATIVE: CASE EVENT DATE: 20230913
